FAERS Safety Report 8583533-6 (Version None)
Quarter: 2012Q3

REPORT INFORMATION
  Report Type: 
  Country: None (occurrence: None)
  Receive Date: 20120809
  Receipt Date: 20120807
  Transmission Date: 20120928
  Serious: Yes (Other)
  Sender: FDA-Public Use
  Company Number: GXKR2012DE002529

PATIENT
  Sex: Male

DRUGS (3)
  1. CLARITHROMYCIN 1A PHARMA [Suspect]
     Indication: HELICOBACTER INFECTION
     Dosage: 250 MG, BID
     Route: 048
  2. OMEPRAZOLE [Suspect]
     Indication: HELICOBACTER INFECTION
     Dosage: 20 MG, BID
     Route: 048
  3. METRONIDAZOLE [Suspect]
     Indication: HELICOBACTER INFECTION
     Dosage: 400 MG, BID
     Route: 048

REACTIONS (5)
  - SYNCOPE [None]
  - VISUAL IMPAIRMENT [None]
  - DIZZINESS [None]
  - MALAISE [None]
  - ANXIETY [None]
